FAERS Safety Report 7280794-0 (Version None)
Quarter: 2011Q1

REPORT INFORMATION
  Report Type: 
  Country: None (occurrence: None)
  Receive Date: 20110125
  Receipt Date: 20110119
  Transmission Date: 20110831
  Serious: Yes (Other)
  Sender: FDA-Public Use
  Company Number: 20109145

PATIENT
  Sex: Male

DRUGS (1)
  1. LIORESAL [Suspect]
     Indication: MUSCLE SPASTICITY
     Dosage: 800 MCG, DAILY, INTRATHECAL
     Route: 037

REACTIONS (4)
  - ASPIRATION [None]
  - DEVICE DAMAGE [None]
  - HYPERTONIA [None]
  - DEVICE LEAKAGE [None]
